FAERS Safety Report 4390840-X (Version None)
Quarter: 2004Q3

REPORT INFORMATION
  Report Type: 
  Country: None (occurrence: None)
  Receive Date: 20040706
  Receipt Date: 20040706
  Transmission Date: 20050211
  Serious: Yes (Hospitalization)
  Sender: FDA-Public Use
  Company Number: None

PATIENT
  Sex: Female

DRUGS (14)
  1. AVELOX [Suspect]
     Indication: PNEUMONIA
     Dosage: 400 MG DAILY ORAL
     Route: 048
     Dates: start: 20040403, end: 20040406
  2. PHENOBARBITAL TAB [Concomitant]
  3. LISINOPRIL [Concomitant]
  4. PREDNISONE [Concomitant]
  5. ZOLOFT [Concomitant]
  6. PHENYTOIN [Concomitant]
  7. PROTONIX [Concomitant]
  8. PRAVACHOL [Concomitant]
  9. ADVAIR DISKUS 100/50 [Concomitant]
  10. KCL TAB [Concomitant]
  11. SINGULAIR [Concomitant]
  12. AVELOX [Concomitant]
  13. LASIX [Concomitant]
  14. NASONEX [Concomitant]

REACTIONS (2)
  - GRAND MAL CONVULSION [None]
  - PNEUMONIA [None]
